FAERS Safety Report 8427281-1 (Version None)
Quarter: 2012Q2

REPORT INFORMATION
  Report Type: 
  Country: None (occurrence: None)
  Receive Date: 20120611
  Receipt Date: 20120604
  Transmission Date: 20120825
  Serious: Yes (Hospitalization)
  Sender: FDA-Public Use
  Company Number: JP-GLAXOSMITHKLINE-B0801466A

PATIENT
  Sex: Female

DRUGS (6)
  1. LAMICTAL [Suspect]
     Indication: PRODUCT USED FOR UNKNOWN INDICATION
     Dosage: 25MG PER DAY
     Route: 048
     Dates: start: 20120423, end: 20120430
  2. DEPAKENE [Suspect]
     Dosage: 200MG PER DAY
     Route: 048
     Dates: start: 20111101, end: 20120422
  3. ZOLOFT [Concomitant]
     Dosage: 25MG PER DAY
     Route: 048
     Dates: start: 20111101, end: 20120510
  4. LAMICTAL [Suspect]
     Dosage: 50MG PER DAY
     Route: 048
     Dates: start: 20120501, end: 20120508
  5. DEPAKENE [Suspect]
     Dosage: 100MG PER DAY
     Route: 048
     Dates: start: 20120423, end: 20120430
  6. CYMBALTA [Concomitant]
     Dosage: 20MG PER DAY
     Route: 048
     Dates: start: 20111101, end: 20120510

REACTIONS (23)
  - STEVENS-JOHNSON SYNDROME [None]
  - ERYTHEMA OF EYELID [None]
  - SCAB [None]
  - C-REACTIVE PROTEIN INCREASED [None]
  - DERMATITIS BULLOUS [None]
  - LIP EROSION [None]
  - PYREXIA [None]
  - EOSINOPHIL PERCENTAGE INCREASED [None]
  - MONOCYTE PERCENTAGE INCREASED [None]
  - TOXIC EPIDERMAL NECROLYSIS [None]
  - BLOOD LACTATE DEHYDROGENASE INCREASED [None]
  - EYE DISCHARGE [None]
  - RASH MACULO-PAPULAR [None]
  - ASPARTATE AMINOTRANSFERASE INCREASED [None]
  - ALANINE AMINOTRANSFERASE INCREASED [None]
  - OCULAR HYPERAEMIA [None]
  - GENERALISED ERYTHEMA [None]
  - BLISTER [None]
  - EPIDERMAL NECROSIS [None]
  - VULVAL DISORDER [None]
  - ERYTHEMA MULTIFORME [None]
  - ORAL MUCOSA EROSION [None]
  - SKIN EROSION [None]
